FAERS Safety Report 9587200 (Version 2)
Quarter: 2013Q4

REPORT INFORMATION
  Report Type: Spontaneous
  Country: US (occurrence: US)
  Receive Date: 20131003
  Receipt Date: 20131108
  Transmission Date: 20140711
  Serious: Yes (Death, Life-Threatening, Disabling)
  Sender: FDA-Public Use
  Company Number: US-GLAXOSMITHKLINE-A1043488A

PATIENT
  Age: 83 Year
  Sex: Male

DRUGS (13)
  1. PROMACTA [Suspect]
     Indication: IMMUNE THROMBOCYTOPENIC PURPURA
     Dosage: 25MG PER DAY
     Route: 048
     Dates: start: 20130119
  2. MULTI VITAMIN [Concomitant]
  3. ACIPHEX [Concomitant]
  4. CARVEDILOL [Concomitant]
  5. GABAPENTIN [Concomitant]
  6. LASIX [Concomitant]
  7. MICRO K [Concomitant]
  8. PREDNISONE [Concomitant]
  9. ARICEPT [Concomitant]
  10. LEVOTHYROXIN [Concomitant]
  11. NAMENDA [Concomitant]
  12. INSULIN [Concomitant]
  13. VITAMIN D [Concomitant]

REACTIONS (1)
  - Death [Fatal]
